FAERS Safety Report 13654561 (Version 1)
Quarter: 2017Q2

REPORT INFORMATION
  Report Type: Spontaneous
  Country: FR (occurrence: FR)
  Receive Date: 20170615
  Receipt Date: 20170615
  Transmission Date: 20170830
  Serious: Yes (Hospitalization)
  Sender: FDA-Public Use
  Company Number: FR-ORION CORPORATION ORION PHARMA-TREX2017-1730

PATIENT
  Age: 79 Year
  Sex: Female

DRUGS (2)
  1. IMETH [Suspect]
     Active Substance: METHOTREXATE SODIUM
     Indication: PSORIATIC ARTHROPATHY
     Dosage: STRENGTH: 10 MG
     Route: 048
     Dates: start: 20170414, end: 20170428
  2. CORTANCYL [Concomitant]
     Active Substance: PREDNISONE
     Indication: PSORIATIC ARTHROPATHY
     Route: 065

REACTIONS (4)
  - Mucosal inflammation [Recovering/Resolving]
  - Febrile bone marrow aplasia [Recovered/Resolved]
  - Toxicity to various agents [Unknown]
  - Pancytopenia [Unknown]

NARRATIVE: CASE EVENT DATE: 20170503
